FAERS Safety Report 17192947 (Version 3)
Quarter: 2021Q2

REPORT INFORMATION
  Report Type: Spontaneous
  Country: US (occurrence: US)
  Receive Date: 20191223
  Receipt Date: 20210514
  Transmission Date: 20210716
  Serious: No
  Sender: FDA-Public Use
  Company Number: US-SA-2019SA346385

PATIENT
  Sex: Male

DRUGS (4)
  1. LEFLUNOMIDE. [Concomitant]
     Active Substance: LEFLUNOMIDE
  2. NAPROXEN. [Concomitant]
     Active Substance: NAPROXEN
  3. VITAMINS NOS [Concomitant]
     Active Substance: VITAMINS
  4. KEVZARA [Suspect]
     Active Substance: SARILUMAB
     Indication: RHEUMATOID ARTHRITIS
     Dosage: 200 MG, QOW
     Route: 058
     Dates: start: 20190507

REACTIONS (4)
  - Increased tendency to bruise [Unknown]
  - Rash [Not Recovered/Not Resolved]
  - Urticaria [Unknown]
  - Pruritus [Unknown]
